FAERS Safety Report 25533005 (Version 1)
Quarter: 2025Q3

REPORT INFORMATION
  Report Type: Spontaneous
  Country: US (occurrence: US)
  Receive Date: 20250709
  Receipt Date: 20250709
  Transmission Date: 20251020
  Serious: Yes (Hospitalization, Other)
  Sender: COOPERSURGICAL
  Company Number: US-COOPERSURGICAL, INC.-2025CPS005276

PATIENT
  Age: 21 Year
  Sex: Female
  Weight: 47.619 kg

DRUGS (4)
  1. PARAGARD T 380A [Suspect]
     Active Substance: COPPER
     Indication: Contraception
     Route: 015
     Dates: start: 20130418
  2. CYMBALTA [Suspect]
     Active Substance: DULOXETINE HYDROCHLORIDE
     Indication: Pelvic pain
  3. ORILISSA [Suspect]
     Active Substance: ELAGOLIX SODIUM
     Indication: Endometriosis
     Dates: start: 20200807
  4. ORILISSA [Suspect]
     Active Substance: ELAGOLIX SODIUM
     Indication: Pelvic pain
     Dates: start: 20200807

REACTIONS (17)
  - Reproductive complication associated with device [Unknown]
  - Injury [Not Recovered/Not Resolved]
  - Mania [Recovered/Resolved]
  - Device breakage [Recovered/Resolved]
  - Foreign body in urogenital tract [Recovered/Resolved]
  - Complication of device removal [Recovered/Resolved]
  - Emotional distress [Unknown]
  - Depression [Unknown]
  - Post-traumatic stress disorder [Not Recovered/Not Resolved]
  - Genito-pelvic pain/penetration disorder [Not Recovered/Not Resolved]
  - Sexual dysfunction [Unknown]
  - Artificial menopause [Unknown]
  - Endometriosis [Recovered/Resolved]
  - Pain [Unknown]
  - Abnormal uterine bleeding [Unknown]
  - Pelvic pain [Not Recovered/Not Resolved]
  - Device expulsion [Recovered/Resolved]

NARRATIVE: CASE EVENT DATE: 20191015
